FAERS Safety Report 9204175 (Version 1)
Quarter: 2013Q2

REPORT INFORMATION
  Report Type: Spontaneous
  Country: US (occurrence: US)
  Receive Date: 20130402
  Receipt Date: 20130402
  Transmission Date: 20140414
  Serious: Yes (Hospitalization)
  Sender: FDA-Public Use
  Company Number: US-BAYER-2013-038482

PATIENT
  Age: 33 Year
  Sex: Female

DRUGS (3)
  1. YAZ [Suspect]
  2. TYLENOL WITH OXYCODONE [Concomitant]
  3. LAXATIVES [Concomitant]

REACTIONS (1)
  - Deep vein thrombosis [Recovering/Resolving]
